FAERS Safety Report 25870887 (Version 2)
Quarter: 2025Q4

REPORT INFORMATION
  Report Type: Report from Study
  Country: GB (occurrence: GB)
  Receive Date: 20251001
  Receipt Date: 20251014
  Transmission Date: 20260118
  Serious: Yes (Death)
  Sender: TEVA
  Company Number: GB-TEVA-VS-3376804

PATIENT
  Sex: Female

DRUGS (1)
  1. TERIPARATIDE [Suspect]
     Active Substance: TERIPARATIDE
     Indication: Osteoporosis
     Dosage: SCHEDULED TO BE ADMINISTERED FOR 24 MONTHS
     Route: 065

REACTIONS (1)
  - Myocardial ischaemia [Fatal]
